FAERS Safety Report 5177240-X (Version None)
Quarter: 2006Q4

REPORT INFORMATION
  Report Type: 
  Country: None (occurrence: None)
  Receive Date: 20061218
  Receipt Date: 20060828
  Transmission Date: 20070319
  Serious: Yes (Hospitalization)
  Sender: FDA-Public Use
  Company Number: DE-GILEAD-2006-0010129

PATIENT
  Sex: Male
  Weight: 55 kg

DRUGS (12)
  1. VIREAD [Suspect]
     Indication: HIV INFECTION
     Route: 048
     Dates: start: 20040428, end: 20040507
  2. EPIVIR [Concomitant]
     Indication: HIV INFECTION
     Route: 048
     Dates: start: 20040301
  3. KALETRA [Concomitant]
     Indication: HIV INFECTION
     Dates: start: 20040317
  4. RETROVIR [Concomitant]
     Indication: HIV INFECTION
     Route: 048
     Dates: start: 20040301, end: 20040427
  5. AMPHO-MORONAL [Concomitant]
     Indication: CANDIDIASIS
     Route: 048
     Dates: start: 20040426, end: 20040528
  6. DIFLUCAN [Concomitant]
     Indication: OESOPHAGEAL CANDIDIASIS
     Route: 048
     Dates: start: 20040427, end: 20040831
  7. TORSEMIDE [Concomitant]
     Indication: OEDEMA
     Route: 048
     Dates: start: 20040305
  8. SPIRONOLACTONE [Concomitant]
     Indication: OEDEMA
     Route: 048
     Dates: start: 20040306
  9. BVK FORTE [Concomitant]
     Route: 048
     Dates: start: 20040306
  10. COTRIM DS [Concomitant]
     Indication: ANTIFUNGAL PROPHYLAXIS
     Dates: start: 20040101
  11. PENTAZOL [Concomitant]
     Indication: DUODENAL ULCER
     Route: 042
     Dates: start: 20040427, end: 20040601
  12. NOVALGIN [Concomitant]
     Indication: PAIN
     Route: 048
     Dates: start: 20040301, end: 20040525

REACTIONS (3)
  - BLOOD CREATININE INCREASED [None]
  - BLOOD POTASSIUM INCREASED [None]
  - BLOOD UREA INCREASED [None]
